FAERS Safety Report 24709161 (Version 2)
Quarter: 2025Q1

REPORT INFORMATION
  Report Type: Spontaneous
  Country: QA (occurrence: QA)
  Receive Date: 20241208
  Receipt Date: 20250115
  Transmission Date: 20250408
  Serious: Yes (Death, Other)
  Sender: BEIGENE
  Company Number: QA-BEIGENE-BGN-2024-019759

PATIENT

DRUGS (2)
  1. BRUKINSA [Suspect]
     Active Substance: ZANUBRUTINIB
     Indication: Marginal zone lymphoma
     Dosage: 160 MILLIGRAM, BID
     Dates: start: 202306, end: 202310
  2. OBINUTUZUMAB [Concomitant]
     Active Substance: OBINUTUZUMAB

REACTIONS (7)
  - Cardiac arrest [Fatal]
  - Haemolytic anaemia [Unknown]
  - Metabolic acidosis [Unknown]
  - Hyperkalaemia [Unknown]
  - Renal impairment [Unknown]
  - Fatigue [Unknown]
  - Dyspnoea [Unknown]
